FAERS Safety Report 9624669 (Version 3)
Quarter: 2014Q1

REPORT INFORMATION
  Report Type: Spontaneous
  Country: FR (occurrence: FR)
  Receive Date: 20131015
  Receipt Date: 20140326
  Transmission Date: 20141002
  Serious: Yes (Hospitalization)
  Sender: FDA-Public Use
  Company Number: FR-009507513-1310FRA005828

PATIENT
  Age: 71 Year
  Sex: Male

DRUGS (10)
  1. VELMETIA [Suspect]
     Indication: PRODUCT USED FOR UNKNOWN INDICATION
     Dosage: 1 DF, BID (2/DAY)
     Route: 048
     Dates: end: 20130926
  2. OMNIPAQUE [Suspect]
     Indication: PRODUCT USED FOR UNKNOWN INDICATION
     Dosage: 130 ML, SINGLE
     Route: 042
     Dates: start: 20130924, end: 20130924
  3. ALDACTONE (CANRENOATE POTASSIUM) [Suspect]
     Indication: PRODUCT USED FOR UNKNOWN INDICATION
     Dosage: UNK
     Route: 065
     Dates: end: 201309
  4. LASILIX [Suspect]
     Indication: PRODUCT USED FOR UNKNOWN INDICATION
     Dosage: UNK
     Dates: end: 201309
  5. TEMESTA [Concomitant]
     Dosage: UNK
     Route: 065
  6. DAONIL [Concomitant]
     Dosage: UNK
     Route: 065
  7. HEMI-DAONIL [Concomitant]
     Route: 065
  8. CRESTOR [Concomitant]
     Dosage: UNK
     Route: 065
     Dates: end: 20130926
  9. DEROXAT [Concomitant]
     Dosage: UNK
     Route: 065
     Dates: end: 20130926
  10. AVLOCARDYL [Concomitant]
     Dosage: UNK
     Route: 065
     Dates: end: 20130926

REACTIONS (3)
  - Hyperkalaemia [Recovered/Resolved]
  - Renal failure acute [Recovered/Resolved]
  - Blood lactic acid increased [Recovered/Resolved]
